FAERS Safety Report 4978811-3 (Version None)
Quarter: 2006Q2

REPORT INFORMATION
  Report Type: 
  Country: None (occurrence: None)
  Receive Date: 20060417
  Receipt Date: 20060323
  Transmission Date: 20061013
  Serious: Yes (Life-Threatening, Hospitalization)
  Sender: FDA-Public Use
  Company Number: 223198

PATIENT
  Age: 62 Year
  Sex: Female
  Weight: 83.5 kg

DRUGS (22)
  1. MABTHERA                   (RITUXIMAB) [Suspect]
     Indication: CHRONIC LYMPHOCYTIC LEUKAEMIA
     Dosage: SEE IMAGE
     Route: 042
     Dates: start: 20050707
  2. MABTHERA                   (RITUXIMAB) [Suspect]
     Indication: CHRONIC LYMPHOCYTIC LEUKAEMIA
     Dosage: SEE IMAGE
     Route: 042
     Dates: start: 20050804
  3. RESPRIM FORTE (SULFAMETHOXAZOLE, TRIMETHOPRIM) [Suspect]
     Indication: PNEUMOCYSTIS JIROVECI INFECTION
     Dosage: 3 TABLET, 2/WEEK, ORAL
     Route: 048
     Dates: start: 20050915, end: 20060309
  4. CYCLOPHOSPHAMIDE [Suspect]
     Indication: CHRONIC LYMPHOCYTIC LEUKAEMIA
     Dosage: SEE IMAGE
     Route: 042
     Dates: start: 20050708, end: 20050904
  5. CYCLOPHOSPHAMIDE [Suspect]
     Indication: CHRONIC LYMPHOCYTIC LEUKAEMIA
     Dosage: SEE IMAGE
     Route: 042
     Dates: start: 20051007
  6. FLUDARABINE [Suspect]
     Indication: CHRONIC LYMPHOCYTIC LEUKAEMIA
     Dosage: SEE IMAGE
     Route: 042
     Dates: start: 20050708, end: 20050904
  7. FLUDARABINE [Suspect]
     Indication: CHRONIC LYMPHOCYTIC LEUKAEMIA
     Dosage: SEE IMAGE
     Route: 042
     Dates: start: 20051007
  8. LEVOTHYROXINE SODIUM [Concomitant]
  9. PANCRELIPASE (PANCRELIPASE) [Concomitant]
  10. ERGOCALCIFEROL (ERGOCALCIFEROL) [Concomitant]
  11. ESTRADIOL [Concomitant]
  12. NYSTATIN [Concomitant]
  13. MIDAZOLAM HYDROCHLORIDE [Concomitant]
  14. LIDOCAINE [Concomitant]
  15. SHARK LIVER OIL (SHARK OIL) [Concomitant]
  16. LIVER DIETARY SUPPLEMENT (NUTRITIONAL SUPPLEMENT) [Concomitant]
  17. ASCORBIC ACID [Concomitant]
  18. VITAMINS + MINERALS (MINERALS NOS, MULTIVITAMINS NOS) [Concomitant]
  19. HERBAL DRUG NOS (HERBAL, HOMEOPATHIC, + DIETARY SUPPLEMENTS) [Concomitant]
  20. EPA (EICOSAPENTAENOIC ACID) [Concomitant]
  21. DHA (DOCOSAHEXAENOIC ACID) [Concomitant]
  22. HERBAL SUPPLEMENT (INGREDIENTS) [Concomitant]

REACTIONS (1)
  - AGRANULOCYTOSIS [None]
